FAERS Safety Report 18027436 (Version 1)
Quarter: 2020Q3

REPORT INFORMATION
  Report Type: Spontaneous
  Country: DK (occurrence: DK)
  Receive Date: 20200716
  Receipt Date: 20200716
  Transmission Date: 20201103
  Serious: Yes (Hospitalization)
  Sender: FDA-Public Use
  Company Number: DK-TEVA-2020-DK-1801128

PATIENT
  Age: 56 Year
  Sex: Female

DRUGS (3)
  1. AJOVY [Suspect]
     Active Substance: FREMANEZUMAB-VFRM
     Indication: MIGRAINE
     Dosage: MONTHLY INJECTION
     Route: 065
     Dates: start: 20200623
  2. MABLET [Concomitant]
     Dosage: 1 DOSAGE FORMS DAILY;
     Route: 065
  3. CANDECETAN [Concomitant]
     Dosage: 16 MILLIGRAM DAILY;
     Route: 065

REACTIONS (1)
  - Atrial fibrillation [Recovered/Resolved]

NARRATIVE: CASE EVENT DATE: 20200709
